FAERS Safety Report 5868762-4 (Version None)
Quarter: 2008Q3

REPORT INFORMATION
  Report Type: 
  Country: None (occurrence: None)
  Receive Date: 20080828
  Receipt Date: 20080825
  Transmission Date: 20090109
  Serious: Yes (Hospitalization, Other)
  Sender: FDA-Public Use
  Company Number: IDA-00101

PATIENT
  Age: 27 Year
  Sex: Female

DRUGS (3)
  1. PROPRANOLOL [Suspect]
     Indication: ADRENAL MASS
  2. PROPRANOLOL [Suspect]
     Indication: PHAEOCHROMOCYTOMA
  3. PHENOXYBENZAMINE [Concomitant]

REACTIONS (6)
  - CAESAREAN SECTION [None]
  - DRUG EXPOSURE DURING PREGNANCY [None]
  - HAEMATOCRIT DECREASED [None]
  - PHAEOCHROMOCYTOMA [None]
  - PREGNANCY INDUCED HYPERTENSION [None]
  - TACHYCARDIA [None]
